FAERS Safety Report 5894572-8 (Version None)
Quarter: 2008Q3

REPORT INFORMATION
  Report Type: 
  Country: None (occurrence: None)
  Receive Date: 20080922
  Receipt Date: 20080905
  Transmission Date: 20090109
  Serious: Yes (Life-Threatening)
  Sender: FDA-Public Use
  Company Number: 013805

PATIENT
  Age: 49 Year
  Sex: Female

DRUGS (3)
  1. PRIALT [Suspect]
     Indication: RADICULAR PAIN
     Dosage: 0.14 UG, ONCE/HOUR, INTRATHECAL, 0.05 UG, ONCE/HOUR, INTRATHECAL
     Route: 037
     Dates: start: 20070817
  2. PRIALT [Suspect]
     Indication: RADICULAR PAIN
     Dosage: 0.14 UG, ONCE/HOUR, INTRATHECAL, 0.05 UG, ONCE/HOUR, INTRATHECAL
     Route: 037
     Dates: start: 20080808
  3. MS CONTIN [Suspect]
     Indication: DRUG USE FOR UNKNOWN INDICATION
     Dosage: 18.5 MG, ONCE/DAY, INTRATHECAL
     Route: 037

REACTIONS (1)
  - RESPIRATORY DEPRESSION [None]
